FAERS Safety Report 6579250-4 (Version None)
Quarter: 2010Q1

REPORT INFORMATION
  Report Type: 
  Country: None (occurrence: None)
  Receive Date: 20100212
  Receipt Date: 20100202
  Transmission Date: 20100710
  Serious: Yes (Life-Threatening, Hospitalization)
  Sender: FDA-Public Use
  Company Number: JP-AMGEN-US375924

PATIENT
  Sex: Female
  Weight: 57 kg

DRUGS (12)
  1. ENBREL [Suspect]
     Indication: RHEUMATOID ARTHRITIS
     Route: 058
     Dates: start: 20060401, end: 20090501
  2. PREDONINE [Suspect]
     Indication: RHEUMATOID ARTHRITIS
     Route: 048
  3. TAGAMET [Concomitant]
     Route: 048
  4. EVISTA [Concomitant]
     Route: 048
  5. MIYARISAN BM [Concomitant]
     Route: 048
  6. CEFDITOREN PIVOXIL [Concomitant]
     Route: 048
  7. LIPOVAS ^BANYU^ [Concomitant]
     Route: 048
  8. GEFANIL [Concomitant]
     Route: 048
  9. DEPAS [Concomitant]
     Route: 048
  10. MOHRUS [Concomitant]
  11. CALONAL [Concomitant]
     Dosage: UNKNOWN
     Route: 048
  12. MAG-LAX [Concomitant]
     Route: 048

REACTIONS (4)
  - COLONIC STENOSIS [None]
  - DIVERTICULAR FISTULA [None]
  - DIVERTICULAR PERFORATION [None]
  - DIVERTICULITIS [None]
